FAERS Safety Report 9951874 (Version 2)
Quarter: 2014Q1

REPORT INFORMATION
  Report Type: Report from Study
  Country: US (occurrence: US)
  Receive Date: 20140304
  Receipt Date: 20140304
  Transmission Date: 20141002
  Serious: No
  Sender: FDA-Public Use
  Company Number: US-ABBVIE-13P-163-1047986-00

PATIENT
  Age: 54 Year
  Sex: Female

DRUGS (5)
  1. HUMIRA [Suspect]
     Indication: CROHN^S DISEASE
     Dates: start: 20130118, end: 20130118
  2. HUMIRA [Suspect]
     Dates: start: 20130201, end: 20130201
  3. HUMIRA [Suspect]
     Dates: start: 20130215, end: 20130215
  4. BONIVA [Concomitant]
     Indication: BONE DISORDER
  5. ASACOL [Concomitant]
     Indication: CROHN^S DISEASE
     Route: 048

REACTIONS (1)
  - Diarrhoea [Recovered/Resolved]
